FAERS Safety Report 5333865-X (Version None)
Quarter: 2007Q2

REPORT INFORMATION
  Report Type: 
  Country: None (occurrence: None)
  Receive Date: 20070306
  Receipt Date: 20060821
  Transmission Date: 20071010
  Serious: Yes (Hospitalization)
  Sender: FDA-Public Use
  Company Number: A03200605278

PATIENT
  Age: 75 Year
  Sex: Male
  Weight: 81.63 kg

DRUGS (10)
  1. PLAVIX [Suspect]
     Indication: CEREBROVASCULAR ACCIDENT
     Dosage: 75 MG QD - ORAL
     Route: 048
     Dates: start: 20051001, end: 20060404
  2. ASPIRIN [Suspect]
     Indication: CEREBROVASCULAR ACCIDENT
     Dosage: 81 MG QD - ORAL
     Route: 048
     Dates: start: 20051001, end: 20060404
  3. HYDROCHLOROTHIAZIDE [Concomitant]
  4. METHOCARBAMOL [Concomitant]
  5. TRAMADOL HCL [Concomitant]
  6. ATENOLOL [Concomitant]
  7. NABUMETONE [Concomitant]
  8. MOXIFLOXACIN HYDROCHLORIDE [Concomitant]
  9. IBUPROFEN [Concomitant]
  10. SUPPLEMENTS: VITAMIN E-1000IU, MULTI VITAMIN WITH LYCOPENE, FLOIC ASID [Concomitant]

REACTIONS (1)
  - POST PROCEDURAL HAEMORRHAGE [None]
